FAERS Safety Report 5203861-1 (Version None)
Quarter: 2007Q1

REPORT INFORMATION
  Report Type: 
  Country: None (occurrence: None)
  Receive Date: 20070105
  Receipt Date: 20070105
  Transmission Date: 20070707
  Serious: Yes (Hospitalization)
  Sender: FDA-Public Use
  Company Number: None

PATIENT
  Age: 61 Year
  Sex: Male
  Weight: 72.6 kg

DRUGS (1)
  1. TACROLIMUS [Suspect]
     Indication: IMMUNOSUPPRESSANT DRUG THERAPY
     Dosage: UNKNOWN DAILY SINCE TRANSPLANT
     Dates: start: 20050301

REACTIONS (7)
  - ABDOMINAL DISCOMFORT [None]
  - BLOOD CREATININE INCREASED [None]
  - CHROMATOPSIA [None]
  - DRUG LEVEL INCREASED [None]
  - HEADACHE [None]
  - REFUSAL OF TREATMENT BY PATIENT [None]
  - VISUAL DISTURBANCE [None]
